FAERS Safety Report 10034124 (Version 2)
Quarter: 2016Q3

REPORT INFORMATION
  Report Type: Spontaneous
  Country: US (occurrence: US)
  Receive Date: 20140325
  Receipt Date: 20160714
  Transmission Date: 20161108
  Serious: No
  Sender: FDA-Public Use
  Company Number: US-BAYER-2014-042969

PATIENT
  Age: 64 Year
  Sex: Female

DRUGS (2)
  1. BETASERON [Suspect]
     Active Substance: INTERFERON BETA-1B
     Indication: MULTIPLE SCLEROSIS
     Dosage: 0.25 MG, UNK
     Route: 058
  2. BETASERON [Suspect]
     Active Substance: INTERFERON BETA-1B
     Indication: PROGRESSIVE MULTIPLE SCLEROSIS
     Dosage: 8 MIU, QOD
     Route: 058
     Dates: start: 20160613

REACTIONS (2)
  - Injection site induration [Not Recovered/Not Resolved]
  - Injection site hypertrophy [None]

NARRATIVE: CASE EVENT DATE: 20140628
